FAERS Safety Report 9170152 (Version 2)
Quarter: 2013Q2

REPORT INFORMATION
  Report Type: Spontaneous
  Country: FR (occurrence: None)
  Receive Date: 20130312
  Receipt Date: 20130418
  Transmission Date: 20140414
  Serious: Yes (Other)
  Sender: FDA-Public Use
  Company Number: ACO_34620_2013

PATIENT
  Age: 42 Year
  Sex: Female
  Weight: 72 kg

DRUGS (5)
  1. FAMPRIDINE-SR [Suspect]
     Indication: MULTIPLE SCLEROSIS
     Route: 048
     Dates: start: 20120827, end: 20130227
  2. INDAPAMIDE (INDAPAMIDE) [Concomitant]
  3. STRESAM (ETIFOXINE HYDROCHLORIDE) [Concomitant]
  4. EUGYNON (ETHINYLESTRADIOL, LEVONORGESTREL) [Concomitant]
  5. SOLUMEDROL (METHYLPREDNISOLONE SODIUM SUCCINATE) [Concomitant]

REACTIONS (2)
  - Thymus disorder [None]
  - Hypomania [None]
